FAERS Safety Report 9218267 (Version 2)
Quarter: 2013Q2

REPORT INFORMATION
  Report Type: Spontaneous
  Country: US (occurrence: US)
  Receive Date: 20130409
  Receipt Date: 20130422
  Transmission Date: 20140414
  Serious: Yes (Hospitalization)
  Sender: FDA-Public Use
  Company Number: US-AMGEN-USASP2013024165

PATIENT
  Age: 46 Year
  Sex: Male
  Weight: 98.41 kg

DRUGS (4)
  1. ENBREL [Suspect]
     Indication: RHEUMATOID ARTHRITIS
     Dosage: 50 MG, QWK
     Route: 058
     Dates: start: 200808, end: 200908
  2. METHOTREXATE [Concomitant]
     Indication: RHEUMATOID ARTHRITIS
     Dosage: 20 MG, QWK
     Route: 048
     Dates: start: 20080130
  3. REMICADE [Concomitant]
     Indication: RHEUMATOID ARTHRITIS
     Dosage: 500 MG, QMO
     Route: 042
     Dates: start: 20090820, end: 20100628
  4. PREDNISONE [Concomitant]
     Dosage: UNK, USE AT DIFFERENT DOSES OFTEN FOR FLARES
     Route: 048

REACTIONS (3)
  - Haemorrhoids [Recovered/Resolved]
  - Abscess [Recovered/Resolved]
  - Nasopharyngitis [Recovered/Resolved]
